FAERS Safety Report 4282930-7 (Version None)
Quarter: 2004Q1

REPORT INFORMATION
  Report Type: 
  Country: None (occurrence: None)
  Receive Date: 20040130
  Receipt Date: 20031208
  Transmission Date: 20041129
  Serious: Yes (Hospitalization)
  Sender: FDA-Public Use
  Company Number: US-ROCHE-353707

PATIENT
  Age: 78 Year
  Sex: Male
  Weight: 118.8 kg

DRUGS (14)
  1. DEMADEX [Suspect]
     Route: 048
  2. ALDACTONE [Suspect]
     Indication: DRUG USE FOR UNKNOWN INDICATION
     Route: 048
     Dates: end: 20021007
  3. AVANDIA [Concomitant]
     Route: 048
  4. LESCOL [Concomitant]
     Route: 048
  5. ASPIRIN [Concomitant]
     Route: 048
  6. LANTUS [Concomitant]
     Route: 058
  7. PROSCAR [Concomitant]
     Route: 048
  8. LOTENSIN [Concomitant]
     Route: 048
  9. NORVASC [Concomitant]
     Route: 048
  10. LOTREL [Concomitant]
     Route: 048
  11. NOVOLIN [Concomitant]
     Dosage: 32 UNITS IN THE MORNING AND 4 UNITS IN THE AFTERNOON.
     Route: 058
  12. GLUCOSAMINE SULFATE/CHONDROITIN [Concomitant]
     Route: 048
  13. CENTRUM [Concomitant]
     Route: 048
  14. GARLIC PEARL [Concomitant]
     Route: 048

REACTIONS (18)
  - ASPARTATE AMINOTRANSFERASE INCREASED [None]
  - BLOOD CALCIUM INCREASED [None]
  - BLOOD GLUCOSE INCREASED [None]
  - BLOOD POTASSIUM INCREASED [None]
  - CARDIAC FAILURE CONGESTIVE [None]
  - CARDIOMEGALY [None]
  - CONSTIPATION [None]
  - CYSTITIS [None]
  - DYSPNOEA [None]
  - EJECTION FRACTION DECREASED [None]
  - EYE REDNESS [None]
  - EYE SWELLING [None]
  - OEDEMA PERIPHERAL [None]
  - PULMONARY OEDEMA [None]
  - RENAL FAILURE [None]
  - SYNCOPE [None]
  - TOOTH ABSCESS [None]
  - URINARY RETENTION [None]
